FAERS Safety Report 7292962-2 (Version None)
Quarter: 2011Q1

REPORT INFORMATION
  Report Type: 
  Country: None (occurrence: None)
  Receive Date: 20110204
  Receipt Date: 20110125
  Transmission Date: 20110831
  Serious: Yes (Other)
  Sender: FDA-Public Use
  Company Number: 2011SP000105

PATIENT
  Age: 64 Year
  Sex: Female

DRUGS (6)
  1. NEBIVOLOL HCL [Concomitant]
  2. DESYREL [Concomitant]
  3. BUSPIRONE [Concomitant]
  4. ALL OTHER THERAPEUTIC PRODUCTS [Concomitant]
  5. LUNESTA [Suspect]
     Indication: INSOMNIA
     Dosage: (1.5 MG; HS; ORAL) (HS; ORAL)
     Route: 048
     Dates: start: 20080101
  6. LUNESTA [Suspect]
     Indication: INSOMNIA
     Dosage: (1.5 MG; HS; ORAL) (HS; ORAL)
     Route: 048
     Dates: start: 20101201

REACTIONS (15)
  - CONVULSION [None]
  - INSOMNIA [None]
  - WEIGHT GAIN POOR [None]
  - PRODUCT QUALITY ISSUE [None]
  - WEIGHT DECREASED [None]
  - ABDOMINAL DISTENSION [None]
  - WEIGHT INCREASED [None]
  - DRUG INEFFECTIVE [None]
  - HYPERHIDROSIS [None]
  - NERVOUS SYSTEM DISORDER [None]
  - TOOTH EXTRACTION [None]
  - ABDOMINAL PAIN [None]
  - INFLUENZA [None]
  - FALL [None]
  - MILK ALLERGY [None]
